FAERS Safety Report 10915089 (Version 1)
Quarter: 2015Q1

REPORT INFORMATION
  Report Type: Spontaneous
  Country: GB (occurrence: GB)
  Receive Date: 20150315
  Receipt Date: 20150315
  Transmission Date: 20150721
  Serious: Yes (Disabling, Other)
  Sender: FDA-Public Use
  Company Number: GB-ELI_LILLY_AND_COMPANY-GB201503000221

PATIENT
  Age: 26 Year
  Sex: Female
  Weight: 53 kg

DRUGS (2)
  1. CYMBALTA [Suspect]
     Active Substance: DULOXETINE HYDROCHLORIDE
     Indication: DEPRESSION
     Dosage: 60 MG, UNKNOWN
     Route: 048
     Dates: start: 20141101, end: 20150101
  2. LYRICA [Concomitant]
     Active Substance: PREGABALIN
     Indication: ANXIETY
     Dosage: UNK

REACTIONS (6)
  - Depressed mood [Recovering/Resolving]
  - Apathy [Recovering/Resolving]
  - Waist circumference increased [Recovering/Resolving]
  - Alcoholism [Recovering/Resolving]
  - Disturbance in attention [Recovering/Resolving]
  - Increased appetite [Recovered/Resolved]
